FAERS Safety Report 20322010 (Version 1)
Quarter: 2022Q1

REPORT INFORMATION
  Report Type: Spontaneous
  Country: US (occurrence: None)
  Receive Date: 20220110
  Receipt Date: 20220110
  Transmission Date: 20220424
  Serious: Yes (Hospitalization)
  Sender: FDA-Public Use
  Company Number: None

PATIENT
  Age: 32 Year
  Sex: Female

DRUGS (2)
  1. REGEN-COV [Suspect]
     Active Substance: CASIRIVIMAB\IMDEVIMAB
     Dates: start: 20220110, end: 20220110
  2. UNSPECIFIED INGREDIENT [Concomitant]
     Active Substance: UNSPECIFIED INGREDIENT
     Dates: start: 20220110, end: 20220110

REACTIONS (4)
  - Flushing [None]
  - Uterine contractions during pregnancy [None]
  - Exposure during pregnancy [None]
  - Infusion related reaction [None]

NARRATIVE: CASE EVENT DATE: 20220110
